FAERS Safety Report 5082753-5 (Version None)
Quarter: 2006Q3

REPORT INFORMATION
  Report Type: 
  Country: None (occurrence: None)
  Receive Date: 20060814
  Receipt Date: 20060731
  Transmission Date: 20061208
  Serious: Yes (Hospitalization)
  Sender: FDA-Public Use
  Company Number: 14419

PATIENT
  Age: 40 Year
  Sex: Male

DRUGS (25)
  1. BLEOMYCIN [Suspect]
     Dosage: 30 UNITS PER_CYCLE IV
     Route: 042
     Dates: start: 20060321
  2. BLEOMYCIN [Suspect]
     Dosage: 30 UNITS PER_CYCLE IV
     Route: 042
  3. BLEOMYCIN [Suspect]
     Dosage: 30 UNITS PER_CYCLE IV
     Route: 042
  4. CISPLATIN [Suspect]
     Dosage: 20 MG/M2 PER_CYCLE IV
     Route: 042
     Dates: start: 20060321
  5. ETOPOSIDE [Suspect]
     Dosage: 100 MG/M2 PER_CYCLE IV
     Route: 042
  6. NEUPOGEN [Concomitant]
  7. ARANESP [Concomitant]
  8. EMEND [Concomitant]
  9. DECADRON /00016001/ [Concomitant]
  10. REGLAN /00041901/ [Concomitant]
  11. PEPCID /000706001/ [Concomitant]
  12. EFFEXOR /01233801/ [Concomitant]
  13. CLARITIN [Concomitant]
  14. FLONASE [Concomitant]
  15. ULCEREASE [Concomitant]
  16. REGLAN /00041901/ [Concomitant]
  17. ZOFRAN [Concomitant]
  18. OXYCODONE HCL [Concomitant]
  19. ZOSYN [Concomitant]
  20. KEFLEX /00145501/ [Concomitant]
  21. DILAUDID [Concomitant]
  22. MS CONTIN [Concomitant]
  23. FENTANYL [Concomitant]
  24. LACTULOSE [Concomitant]
  25. NEXIUM [Concomitant]

REACTIONS (13)
  - BLOOD POTASSIUM DECREASED [None]
  - BLOOD SODIUM DECREASED [None]
  - CATHETER SITE DISCHARGE [None]
  - CATHETER SITE ERYTHEMA [None]
  - CATHETER SITE PAIN [None]
  - COMPUTERISED TOMOGRAM ABNORMAL [None]
  - DEVICE RELATED INFECTION [None]
  - FEEDING TUBE COMPLICATION [None]
  - HAEMATOCRIT DECREASED [None]
  - HAEMOGLOBIN DECREASED [None]
  - PYREXIA [None]
  - SWELLING [None]
  - WHITE BLOOD CELL COUNT DECREASED [None]
